FAERS Safety Report 10210204 (Version 1)
Quarter: 2014Q2

REPORT INFORMATION
  Report Type: Spontaneous
  Country: JP (occurrence: JP)
  Receive Date: 20140602
  Receipt Date: 20140602
  Transmission Date: 20141212
  Serious: Yes (Hospitalization, Other)
  Sender: FDA-Public Use
  Company Number: JP-GE HEALTHCARE MEDICAL DIAGNOSTICS-VISP-PR-1405S-0247

PATIENT
  Age: 62 Year
  Sex: Female
  Weight: 47 kg

DRUGS (6)
  1. VISIPAQUE [Suspect]
     Indication: INTRACRANIAL ANEURYSM
     Dosage: DOSE NOT REPORTED
     Route: 065
     Dates: start: 20130830, end: 20130830
  2. VISIPAQUE [Suspect]
     Indication: THERAPEUTIC PROCEDURE
  3. PLAVIX [Concomitant]
     Dates: start: 20130813
  4. ASPIRIN [Concomitant]
     Dates: start: 20130813
  5. TAKEPRON [Concomitant]
     Dates: start: 20130813
  6. PLETAAL [Concomitant]
     Dates: start: 20130813, end: 20130830

REACTIONS (1)
  - Contrast encephalopathy [Recovered/Resolved with Sequelae]
